FAERS Safety Report 11927349 (Version 2)
Quarter: 2016Q1

REPORT INFORMATION
  Report Type: Report from Study
  Country: US (occurrence: US)
  Receive Date: 20160119
  Receipt Date: 20160210
  Transmission Date: 20160526
  Serious: Yes (Hospitalization)
  Sender: FDA-Public Use
  Company Number: US-ACTELION-A-US2016-130012

PATIENT
  Age: 67 Year
  Sex: Female

DRUGS (12)
  1. COUMADIN [Concomitant]
     Active Substance: WARFARIN SODIUM
  2. CLOPIDOGREL [Concomitant]
     Active Substance: CLOPIDOGREL BISULFATE
  3. CARVEDILOL. [Concomitant]
     Active Substance: CARVEDILOL
  4. AMIODARONE [Concomitant]
     Active Substance: AMIODARONE
  5. FUROSEMIDE. [Concomitant]
     Active Substance: FUROSEMIDE
  6. ISORDIL [Concomitant]
     Active Substance: ISOSORBIDE DINITRATE
  7. LISINOPRIL. [Concomitant]
     Active Substance: LISINOPRIL
  8. HYDRALAZINE [Concomitant]
     Active Substance: HYDRALAZINE HYDROCHLORIDE
  9. TRACLEER [Suspect]
     Active Substance: BOSENTAN
     Indication: PULMONARY ARTERIAL HYPERTENSION
     Dosage: 125 MG, BID
     Route: 048
     Dates: start: 201407, end: 201511
  10. SIMVASTATIN. [Concomitant]
     Active Substance: SIMVASTATIN
  11. FAMOTIDINE. [Concomitant]
     Active Substance: FAMOTIDINE
  12. K TAB [Concomitant]

REACTIONS (1)
  - Heart transplant [Unknown]

NARRATIVE: CASE EVENT DATE: 20151201
